FAERS Safety Report 8220652-8 (Version None)
Quarter: 2012Q1

REPORT INFORMATION
  Report Type: 
  Country: None (occurrence: None)
  Receive Date: 20120320
  Receipt Date: 20120314
  Transmission Date: 20120608
  Serious: Yes (Other)
  Sender: FDA-Public Use
  Company Number: GB-ASTELLAS-2012EU001774

PATIENT
  Sex: Female
  Weight: 70 kg

DRUGS (2)
  1. POLYETHYLENE GLYCOL [Concomitant]
     Indication: CONSTIPATION
     Dosage: UNK
     Route: 048
     Dates: start: 20101001
  2. VESICARE [Suspect]
     Indication: INCONTINENCE
     Dosage: 1 DF, UNKNOWN/D
     Route: 048
     Dates: start: 20120116

REACTIONS (2)
  - CONFUSIONAL STATE [None]
  - MEMORY IMPAIRMENT [None]
